FAERS Safety Report 4526432-9 (Version None)
Quarter: 2004Q4

REPORT INFORMATION
  Report Type: 
  Country: None (occurrence: None)
  Receive Date: 20041214
  Receipt Date: 20041208
  Transmission Date: 20050328
  Serious: Yes (Death)
  Sender: FDA-Public Use
  Company Number: DE-ROCHE-388600

PATIENT
  Age: 54 Year
  Sex: Male

DRUGS (6)
  1. MYCOPHENOLATE MOFETIL [Suspect]
     Route: 048
     Dates: start: 20041104, end: 20041124
  2. TACROLIMUS [Suspect]
     Route: 048
     Dates: start: 20041104, end: 20041124
  3. PREDNISONE TAB [Suspect]
     Route: 065
  4. CANDESARTAN [Concomitant]
  5. DOXAZOSIN [Concomitant]
  6. NEBIVOLOL [Concomitant]

REACTIONS (3)
  - ASTHENIA [None]
  - CIRCULATORY COLLAPSE [None]
  - MYOCARDIAL INFARCTION [None]
